FAERS Safety Report 8945269 (Version 2)
Quarter: 2013Q1

REPORT INFORMATION
  Report Type: Spontaneous
  Country: US (occurrence: US)
  Receive Date: 20121204
  Receipt Date: 20130305
  Transmission Date: 20140127
  Serious: No
  Sender: FDA-Public Use
  Company Number: US-AMGEN-USASP2012074309

PATIENT
  Age: 51 Year
  Sex: Female
  Weight: 136.5 kg

DRUGS (1)
  1. ENBREL [Suspect]
     Indication: RHEUMATOID ARTHRITIS
     Dosage: 50 MG, QWK
     Dates: start: 20061218

REACTIONS (2)
  - Urinary tract disorder [Not Recovered/Not Resolved]
  - Back pain [Not Recovered/Not Resolved]
